FAERS Safety Report 4912929-6 (Version None)
Quarter: 2006Q1

REPORT INFORMATION
  Report Type: 
  Country: None (occurrence: None)
  Receive Date: 20060113
  Receipt Date: 20050503
  Transmission Date: 20060701
  Serious: Yes (Hospitalization, Other)
  Sender: FDA-Public Use
  Company Number: HQWYE510304MAY05

PATIENT
  Age: 66 Year
  Sex: Female
  Weight: 63.11 kg

DRUGS (4)
  1. PREMPRO [Suspect]
     Indication: MENOPAUSAL SYMPTOMS
     Dosage: 0.625/2.5 MG ONCE
     Dates: end: 20050418
  2. ALTACE [Concomitant]
  3. NEXIUM [Concomitant]
  4. ASPIRIN [Concomitant]

REACTIONS (1)
  - ENDOMETRIAL CANCER [None]
